FAERS Safety Report 7285350-6 (Version None)
Quarter: 2011Q1

REPORT INFORMATION
  Report Type: 
  Country: None (occurrence: None)
  Receive Date: 20110121
  Receipt Date: 20081205
  Transmission Date: 20110831
  Serious: No
  Sender: FDA-Public Use
  Company Number: 08-233

PATIENT
  Age: 24 Year
  Sex: Female

DRUGS (1)
  1. FAZACLO ODT [Suspect]
     Dosage: 400 MG QHS PO
     Route: 048
     Dates: start: 20071213, end: 20081202

REACTIONS (1)
  - LETHARGY [None]
